FAERS Safety Report 24457848 (Version 1)
Quarter: 2024Q4

REPORT INFORMATION
  Report Type: Spontaneous
  Country: CN (occurrence: CN)
  Receive Date: 20241018
  Receipt Date: 20241018
  Transmission Date: 20250114
  Serious: Yes (Other)
  Sender: ALEXION PHARMACEUTICALS
  Company Number: CN-ASTRAZENECA-202410CHN007353CN

PATIENT
  Age: 52 Year
  Weight: 57 kg

DRUGS (4)
  1. IRESSA [Suspect]
     Active Substance: GEFITINIB
     Indication: Neoplasm
     Dosage: 1 DOSAGE FORM, QD
  2. IRESSA [Suspect]
     Active Substance: GEFITINIB
     Indication: Lung neoplasm malignant
     Dosage: 1 DOSAGE FORM, QD
  3. IRESSA [Suspect]
     Active Substance: GEFITINIB
     Dosage: 1 DOSAGE FORM, QD
  4. IRESSA [Suspect]
     Active Substance: GEFITINIB
     Dosage: 1 DOSAGE FORM, QD

REACTIONS (7)
  - Chronic gastritis [Recovering/Resolving]
  - Symptom recurrence [Recovering/Resolving]
  - Diarrhoea [Recovering/Resolving]
  - Weight decreased [Recovering/Resolving]
  - Erosive duodenitis [Recovering/Resolving]
  - Gastrooesophageal reflux disease [Recovering/Resolving]
  - Asthenia [Recovering/Resolving]
